FAERS Safety Report 6124511-6 (Version None)
Quarter: 2009Q1

REPORT INFORMATION
  Report Type: 
  Country: None (occurrence: None)
  Receive Date: 20090317
  Receipt Date: 20090317
  Transmission Date: 20090719
  Serious: Yes (Other)
  Sender: FDA-Public Use
  Company Number: None

PATIENT
  Sex: Male
  Weight: 34.0198 kg

DRUGS (1)
  1. GENERIC LICE SHAMPOO PYRETHRINS (LIFE BRAND) [Suspect]
     Indication: LICE INFESTATION
     Dosage: 60 ML MARCH 4TH
     Dates: start: 20090304, end: 20090304

REACTIONS (3)
  - DECREASED APPETITE [None]
  - NAUSEA [None]
  - VOMITING [None]
